APPROVED DRUG PRODUCT: ESTRADIOL AND NORETHINDRONE ACETATE
Active Ingredient: ESTRADIOL; NORETHINDRONE ACETATE
Strength: 0.5MG;0.1MG
Dosage Form/Route: TABLET;ORAL
Application: A078324 | Product #002 | TE Code: AB
Applicant: BRECKENRIDGE PHARMACEUTICAL INC
Approved: Jun 9, 2011 | RLD: No | RS: No | Type: RX